FAERS Safety Report 4944274-7 (Version None)
Quarter: 2006Q1

REPORT INFORMATION
  Report Type: 
  Country: None (occurrence: None)
  Receive Date: 20060315
  Receipt Date: 20060303
  Transmission Date: 20060701
  Serious: Yes (Hospitalization)
  Sender: FDA-Public Use
  Company Number: EM2006-0070

PATIENT
  Age: 17 Year
  Sex: Female

DRUGS (17)
  1. ACYCLOVIR [Suspect]
     Indication: PROPHYLAXIS
     Dosage: 800MG TWICE PER DAY
  2. CYCLOSPORINE [Suspect]
     Indication: LUNG TRANSPLANT
     Dosage: 300MG THREE TIMES PER WEEK
     Route: 055
     Dates: start: 20050509, end: 20060113
  3. PROGRAF [Suspect]
     Dosage: 4.5MG TWICE PER DAY
     Route: 048
     Dates: start: 20040101
  4. CELLCEPT [Suspect]
     Dosage: 4TAB TWICE PER DAY
     Route: 048
  5. PREDNISOLONE [Suspect]
     Dosage: 5MG PER DAY
  6. AZITHROMYCIN [Concomitant]
  7. ASCORBIC ACID [Concomitant]
  8. ASPIRIN [Concomitant]
  9. LANSOPRAZOLE [Concomitant]
  10. ALBUTEROL [Concomitant]
  11. PULMOZYME [Concomitant]
  12. PERCOCET [Concomitant]
  13. MIRALAX [Concomitant]
  14. ZOFRAN [Concomitant]
  15. NYSTATIN [Concomitant]
  16. PULMICORT [Concomitant]
  17. BACTRIM DS [Concomitant]

REACTIONS (11)
  - COUGH [None]
  - DYSPNOEA [None]
  - LUNG INFILTRATION [None]
  - ORAL INTAKE REDUCED [None]
  - PAIN [None]
  - PNEUMONIA RESPIRATORY SYNCYTIAL VIRAL [None]
  - PNEUMOTHORAX [None]
  - PROCEDURAL PAIN [None]
  - RESPIRATORY DISORDER [None]
  - SLEEP DISORDER [None]
  - VOMITING [None]
